FAERS Safety Report 17768806 (Version 1)
Quarter: 2020Q2

REPORT INFORMATION
  Report Type: Spontaneous
  Country: GB (occurrence: GB)
  Receive Date: 20200512
  Receipt Date: 20200512
  Transmission Date: 20200714
  Serious: Yes (Other)
  Sender: FDA-Public Use
  Company Number: GB-AUROBINDO-AUR-APL-2020-024058

PATIENT
  Age: 33 Year
  Sex: Female
  Weight: 96 kg

DRUGS (23)
  1. VENTOLIN [Concomitant]
     Active Substance: ALBUTEROL SULFATE
     Indication: PRODUCT USED FOR UNKNOWN INDICATION
     Dosage: 1 TO 2 PUFFS UP TO FOUR TIMES DAILY AS REQUIRED. 100MICROGRAMS/DOSE
     Route: 065
     Dates: start: 20200131
  2. HYDROCORTISONE SODIUM SUCCINATE [Concomitant]
     Active Substance: HYDROCORTISONE SODIUM SUCCINATE
     Indication: PRODUCT USED FOR UNKNOWN INDICATION
     Dosage: 100 MILLIGRAM (TO BE USED IF UNABLE TO TAKE ORAL HYDROCORTISONE)
     Route: 065
     Dates: start: 20200131
  3. METFORMIN [Concomitant]
     Active Substance: METFORMIN HYDROCHLORIDE
     Indication: PRODUCT USED FOR UNKNOWN INDICATION
     Dosage: 1000 MILLIGRAM, ONCE A DAY (WITH EVENING MEAL)
     Route: 065
     Dates: start: 20200131
  4. DERMOL [Concomitant]
     Active Substance: BENZALKONIUM CHLORIDE\CHLORHEXIDINE HYDROCHLORIDE\ISOPROPYL MYRISTATE\PARAFFIN
     Indication: ECZEMA
     Dosage: APPLY TO SKIN OR USE AS A SOAP SUBSTITUTE
     Route: 065
     Dates: start: 20200401
  5. DUPILUMAB [Concomitant]
     Active Substance: DUPILUMAB
     Indication: PRODUCT USED FOR UNKNOWN INDICATION
     Dosage: 200MG/1.14ML
     Route: 065
     Dates: start: 201901
  6. HYDROCORTISONE. [Concomitant]
     Active Substance: HYDROCORTISONE
     Indication: ADDISON^S DISEASE
     Dosage: 20 MILLIGRAM, ONCE A DAY (10MG IN THE MORNING, 5MG AT LUNCHTIME AND 5MG AT NIGHT)
     Route: 065
     Dates: start: 20200401
  7. IVABRADINE [Concomitant]
     Active Substance: IVABRADINE
     Indication: PRODUCT USED FOR UNKNOWN INDICATION
     Dosage: 10 MILLIGRAM, ONCE A DAY
     Route: 065
     Dates: start: 20200131
  8. ACICLOVIR [Concomitant]
     Active Substance: ACYCLOVIR
     Indication: PRODUCT USED FOR UNKNOWN INDICATION
     Dosage: 800 MILLIGRAM, ONCE A DAY
     Route: 065
     Dates: start: 20200131
  9. CETRABEN [Concomitant]
     Active Substance: PARAFFIN
     Indication: ECZEMA
     Dosage: UNK, AS NECESSARY
     Route: 065
     Dates: start: 20200401
  10. CYCLIZINE [Concomitant]
     Active Substance: CYCLIZINE
     Indication: PRODUCT USED FOR UNKNOWN INDICATION
     Dosage: 50 MILLIGRAM, AS NECESSARY (ONE TO BE TAKEN UP TO THREE TIMES A DAY)
     Route: 065
     Dates: start: 20200131
  11. FEXOFENADINE [Concomitant]
     Active Substance: FEXOFENADINE HYDROCHLORIDE
     Indication: PRODUCT USED FOR UNKNOWN INDICATION
     Dosage: 120 MILLIGRAM, ONCE A DAY
     Route: 065
     Dates: start: 20200131
  12. SERTRALINE [Concomitant]
     Active Substance: SERTRALINE HYDROCHLORIDE
     Indication: PRODUCT USED FOR UNKNOWN INDICATION
     Dosage: 100 MILLIGRAM, ONCE A DAY
     Route: 065
     Dates: start: 20200131
  13. MONOPOST [Concomitant]
     Active Substance: LATANOPROST
     Indication: PRODUCT USED FOR UNKNOWN INDICATION
     Dosage: 0.2 MILLILITER, ONCE A DAY (50 MICROGRAM/ML. ONE DROP TO BE USED AT NIGHT IN THE AFFECTED EYE(S)
     Route: 065
     Dates: start: 20200221
  14. QUETIAPINE FILM-COATED TABLET [Suspect]
     Active Substance: QUETIAPINE
     Indication: DEPRESSION
     Dosage: 25 MILLIGRAM, ONCE A DAY (AT NIGHT)
     Route: 065
     Dates: start: 20200401
  15. SYMBICORT [Concomitant]
     Active Substance: BUDESONIDE\FORMOTEROL FUMARATE DIHYDRATE
     Indication: ASTHMA
     Dosage: 4 DOSAGE FORM, ONCE A DAY
     Route: 065
     Dates: start: 20200401
  16. FLUDROCORTISONE [Concomitant]
     Active Substance: FLUDROCORTISONE
     Indication: PRODUCT USED FOR UNKNOWN INDICATION
     Dosage: 50 MICROGRAM, TWO TIMES A DAY (TAKE 50MCG ( HALF A TABLET ) TWICE DAILY MDU BY, ENDOCRINOLOGY)
     Route: 065
     Dates: start: 20200131
  17. OILATUM PLUS [Concomitant]
     Indication: ECZEMA
     Dosage: ADD ONE TO TWO CAPFULS TO BATH WATER
     Route: 065
     Dates: start: 20200401
  18. MOMETASONE [Concomitant]
     Active Substance: MOMETASONE
     Indication: PRODUCT USED FOR UNKNOWN INDICATION
     Dosage: 1 DOSAGE FORM, ONCE A DAY (APPLY THINLY AS DIRECTED)
     Route: 065
     Dates: start: 20200421
  19. CHLORAMPHENICOL [Concomitant]
     Active Substance: CHLORAMPHENICOL
     Indication: PRODUCT USED FOR UNKNOWN INDICATION
     Dosage: 2 MILLILITER, ONCE A DAY (IN AFFECTED EYE(S)
     Route: 065
     Dates: start: 20200221
  20. CANESTEN HYDROCORTISONE [Concomitant]
     Indication: PRODUCT USED FOR UNKNOWN INDICATION
     Dosage: 2 DOSAGE FORM, ONCE A DAYAPPLY THINLY, FOR MAXIMUM 2 WEEKS
     Dates: start: 20200206
  21. REFRESH CELLUVISC [Concomitant]
     Active Substance: CARBOXYMETHYLCELLULOSE SODIUM
     Indication: PRODUCT USED FOR UNKNOWN INDICATION
     Dosage: 0.4 MILLILITER, EVERY HOUR (AS DIRECTED BY HOSPITAL)
     Route: 065
     Dates: start: 20200221
  22. OMEPRAZOLE. [Concomitant]
     Active Substance: OMEPRAZOLE
     Indication: PRODUCT USED FOR UNKNOWN INDICATION
     Dosage: 20 MILLIGRAM, ONCE A DAY
     Route: 065
     Dates: start: 20200131
  23. DEXAMETHASONE. [Concomitant]
     Active Substance: DEXAMETHASONE
     Indication: PRODUCT USED FOR UNKNOWN INDICATION
     Dosage: 8 GTT DROPS, ONCE A DAY (ONE DROP BOTH EYES , FOUR TIMES A DAY)
     Route: 065
     Dates: start: 20200221

REACTIONS (3)
  - Stevens-Johnson syndrome [Unknown]
  - Genital rash [Unknown]
  - Urticaria [Unknown]
